FAERS Safety Report 8821406 (Version 1)
Quarter: 2012Q4

REPORT INFORMATION
  Report Type: 
  Country: US (occurrence: US)
  Receive Date: 20121002
  Receipt Date: 20121002
  Transmission Date: 20130627
  Serious: Yes (Other)
  Sender: FDA-Public Use
  Company Number: US-DX529-2012DX000196

PATIENT
  Age: 33 Year
  Sex: Female

DRUGS (4)
  1. KALBITOR [Suspect]
     Indication: HEREDITARY ANGIOEDEMA
     Route: 058
     Dates: start: 20110311, end: 20110311
  2. KALBITOR [Suspect]
     Indication: HEREDITARY ANGIOEDEMA
     Route: 058
     Dates: start: 20120823, end: 20120823
  3. KALBITOR [Suspect]
     Indication: HEREDITARY ANGIOEDEMA
     Route: 058
     Dates: start: 20120830, end: 20120830
  4. METFORMIN [Concomitant]
     Indication: POLYCYSTIC OVARIES

REACTIONS (4)
  - Cerebral haemorrhage [Recovered/Resolved]
  - Jaw fracture [Not Recovered/Not Resolved]
  - Fall [Recovered/Resolved]
  - Hereditary angioedema [Unknown]
